FAERS Safety Report 7725774-3 (Version None)
Quarter: 2011Q3

REPORT INFORMATION
  Report Type: 
  Country: None (occurrence: None)
  Receive Date: 20110902
  Receipt Date: 20110824
  Transmission Date: 20111222
  Serious: Yes (Death)
  Sender: FDA-Public Use
  Company Number: JP-BRISTOL-MYERS SQUIBB COMPANY-16017600

PATIENT

DRUGS (1)
  1. PACLITAXEL [Suspect]

REACTIONS (1)
  - DEATH [None]
